FAERS Safety Report 20020614 (Version 6)
Quarter: 2023Q1

REPORT INFORMATION
  Report Type: Report from Study
  Country: CA (occurrence: CA)
  Receive Date: 20211101
  Receipt Date: 20230203
  Transmission Date: 20230417
  Serious: Yes (Other)
  Sender: FDA-Public Use
  Company Number: CA-NOVARTISPH-NVSC2020CA074321

PATIENT
  Age: 78 Year
  Sex: Female
  Weight: 92.063 kg

DRUGS (3)
  1. SANDOSTATIN LAR DEPOT [Suspect]
     Active Substance: OCTREOTIDE ACETATE
     Indication: Carcinoid tumour
     Dosage: 30 MG, Q4W
     Route: 030
     Dates: start: 20191120
  2. SANDOSTATIN LAR DEPOT [Suspect]
     Active Substance: OCTREOTIDE ACETATE
     Dosage: 30 MG, Q4W
     Route: 030
     Dates: start: 20210830
  3. SANDOSTATIN LAR DEPOT [Suspect]
     Active Substance: OCTREOTIDE ACETATE

REACTIONS (18)
  - Eye haemorrhage [Unknown]
  - Paraesthesia [Unknown]
  - Anxiety [Unknown]
  - Stress [Unknown]
  - Blood pressure abnormal [Unknown]
  - Oral pain [Unknown]
  - Groin pain [Unknown]
  - Pain in extremity [Unknown]
  - Fall [Unknown]
  - Gait inability [Unknown]
  - Limb injury [Unknown]
  - Gout [Recovered/Resolved]
  - Gout [Unknown]
  - COVID-19 [Unknown]
  - Cough [Unknown]
  - Rhinorrhoea [Unknown]
  - Malaise [Unknown]
  - Heart rate irregular [Unknown]

NARRATIVE: CASE EVENT DATE: 20201101
